FAERS Safety Report 8032827-1 (Version None)
Quarter: 2012Q1

REPORT INFORMATION
  Report Type: 
  Country: None (occurrence: None)
  Receive Date: 20120110
  Receipt Date: 20120106
  Transmission Date: 20120608
  Serious: Yes (Hospitalization)
  Sender: FDA-Public Use
  Company Number: SG-B.I. PHARMACEUTICALS,INC./RIDGEFIELD-2011-CS-01029MD

PATIENT
  Sex: Male

DRUGS (11)
  1. PRADAXA [Suspect]
     Indication: CEREBROVASCULAR ACCIDENT PROPHYLAXIS
     Dosage: 300 MG
     Route: 048
     Dates: start: 20110609
  2. AUGMENTIN '125' [Concomitant]
  3. BISOPROLOL FUMARATE [Concomitant]
  4. ROMSEC [Concomitant]
     Dosage: 40MG OM
  5. SINVOR [Concomitant]
  6. CLINDAMYCIN HCL [Concomitant]
  7. FUROSEMIDE [Concomitant]
     Dosage: 40MG OM
  8. GLUCOPHAGE [Concomitant]
     Dosage: 1000 MG
  9. METFORMIN HCL [Concomitant]
  10. PREDNISOLONE [Concomitant]
     Dosage: 60 MG
  11. IFISTATIN [Concomitant]
     Dosage: 20 MG

REACTIONS (3)
  - NEPHROTIC SYNDROME [None]
  - OEDEMA PERIPHERAL [None]
  - OEDEMA GENITAL [None]
